FAERS Safety Report 8887132 (Version 1)
Quarter: 2012Q4

REPORT INFORMATION
  Report Type: 
  Country: ES (occurrence: ES)
  Receive Date: 20121105
  Receipt Date: 20121105
  Transmission Date: 20130627
  Serious: Yes (Life-Threatening, Hospitalization, Other)
  Sender: FDA-Public Use
  Company Number: ES-ASTRAZENECA-2012SE83274

PATIENT
  Age: 64 Year
  Sex: Male

DRUGS (5)
  1. CRESTOR [Suspect]
     Indication: HYPERLIPIDAEMIA
     Route: 048
     Dates: start: 201003, end: 20110912
  2. TROMALYT [Interacting]
     Indication: PROPHYLAXIS
     Route: 065
     Dates: start: 200802, end: 20110912
  3. SINTROM [Interacting]
     Indication: CARDIAC VALVE DISEASE
     Route: 048
     Dates: start: 200811, end: 20110912
  4. PANTOPRAZOL [Concomitant]
     Indication: PROPHYLAXIS
     Route: 048
     Dates: start: 200811
  5. RENITEC [Concomitant]
     Indication: HYPERTENSION
     Route: 048
     Dates: start: 200811, end: 20110912

REACTIONS (2)
  - Drug interaction [Unknown]
  - Upper gastrointestinal haemorrhage [Recovered/Resolved]
